FAERS Safety Report 14802112 (Version 1)
Quarter: 2018Q2

REPORT INFORMATION
  Report Type: Spontaneous
  Country: US (occurrence: US)
  Receive Date: 20180424
  Receipt Date: 20180424
  Transmission Date: 20180711
  Serious: No
  Sender: FDA-Public Use
  Company Number: US-BIOGEN-2018BI00558346

PATIENT
  Sex: Female

DRUGS (1)
  1. TYSABRI [Suspect]
     Active Substance: NATALIZUMAB
     Indication: MULTIPLE SCLEROSIS
     Route: 065
     Dates: end: 20180129

REACTIONS (5)
  - Hemianaesthesia [Unknown]
  - Dysphemia [Unknown]
  - Fall [Recovered/Resolved]
  - Motor dysfunction [Unknown]
  - Balance disorder [Unknown]
